FAERS Safety Report 20756404 (Version 1)
Quarter: 2022Q2

REPORT INFORMATION
  Report Type: Spontaneous
  Country: HU (occurrence: HU)
  Receive Date: 20220427
  Receipt Date: 20220427
  Transmission Date: 20220721
  Serious: Yes (Other)
  Sender: FDA-Public Use
  Company Number: HU-AstraZeneca-2012SE41672

PATIENT

DRUGS (3)
  1. METFORMIN [Suspect]
     Active Substance: METFORMIN HYDROCHLORIDE
     Indication: Type 2 diabetes mellitus
     Dosage: 1500 MILLIGRAM, QD
     Route: 048
  2. EXENATIDE [Suspect]
     Active Substance: EXENATIDE
     Indication: Type 2 diabetes mellitus
     Dosage: 10 MICROGRAM, BID(4WEEK)
  3. EXENATIDE [Suspect]
     Active Substance: EXENATIDE
     Dosage: 5 MICROGRAM, BID(4WEEKS)

REACTIONS (1)
  - Hypoglycaemia [Recovered/Resolved]
